FAERS Safety Report 7169531 (Version 1)
Quarter: 2020Q3

REPORT INFORMATION
  Report Type: Report from Study
  Country: US (occurrence: US)
  Receive Date: 20091106
  Receipt Date: 20091106
  Transmission Date: 20201105
  Serious: Yes (Other)
  Sender: FDA-Public Use
  Company Number: US-ASTRAZENECA-2009SE24154

PATIENT
  Age: 108 Month
  Sex: Male
  Weight: 30.4 kg

DRUGS (9)
  1. SENNA [Concomitant]
  2. ATENOLOL. [Suspect]
     Active Substance: ATENOLOL
  3. AMLODIPINE [Suspect]
     Active Substance: AMLODIPINE BESYLATE
  4. CEDIRANIB. [Suspect]
     Active Substance: CEDIRANIB
     Route: 048
     Dates: start: 20090709, end: 20090929
  5. SYNTHROID [Suspect]
     Active Substance: LEVOTHYROXINE SODIUM
  6. LISINOPRIL. [Concomitant]
     Active Substance: LISINOPRIL
  7. MYRALAX [Concomitant]
  8. CEDIRANIB. [Suspect]
     Active Substance: CEDIRANIB
     Indication: CENTRAL NERVOUS SYSTEM NEOPLASM
     Route: 048
     Dates: start: 20090430, end: 20090709
  9. HYDRALAZINE [Suspect]
     Active Substance: HYDRALAZINE HYDROCHLORIDE

REACTIONS (5)
  - Pain [Not Recovered/Not Resolved]
  - Proteinuria [Not Recovered/Not Resolved]
  - Hypertension [Not Recovered/Not Resolved]
  - Constipation [Recovering/Resolving]
  - Hypoalbuminaemia [Not Recovered/Not Resolved]

NARRATIVE: CASE EVENT DATE: 20090717
